FAERS Safety Report 7833824-9 (Version None)
Quarter: 2011Q4

REPORT INFORMATION
  Report Type: 
  Country: None (occurrence: None)
  Receive Date: 20111024
  Receipt Date: 20111013
  Transmission Date: 20120403
  Serious: Yes (Disabling)
  Sender: FDA-Public Use
  Company Number: US-GLAXOSMITHKLINE-A0948984A

PATIENT
  Age: 27 Year
  Sex: Female

DRUGS (5)
  1. LAMICTAL XR [Suspect]
     Indication: CONVULSION
     Dosage: 100MG VARIABLE DOSE
     Route: 048
  2. TOPAMAX [Concomitant]
  3. VITAMIN D [Concomitant]
  4. AMBIEN [Concomitant]
     Dosage: 10MG AS REQUIRED
  5. FOLIC ACID [Concomitant]
     Dosage: 4MG PER DAY

REACTIONS (3)
  - PRODUCT QUALITY ISSUE [None]
  - DRUG LEVEL DECREASED [None]
  - CONVULSION [None]
